FAERS Safety Report 20168109 (Version 1)
Quarter: 2021Q4

REPORT INFORMATION
  Report Type: Spontaneous
  Country: US (occurrence: US)
  Receive Date: 20211210
  Receipt Date: 20211210
  Transmission Date: 20220303
  Serious: No
  Sender: FDA-Public Use
  Company Number: US-AMGEN-USASP2021193787

PATIENT
  Age: 56 Year
  Sex: Female

DRUGS (3)
  1. ENBREL [Suspect]
     Active Substance: ETANERCEPT
     Indication: Product used for unknown indication
     Dosage: UNK
     Route: 065
     Dates: start: 2021
  2. HUMIRA [Suspect]
     Active Substance: ADALIMUMAB
     Indication: Psoriatic arthropathy
     Dosage: 40 MILLIGRAM, Q2WK
     Route: 058
     Dates: start: 20211114
  3. HUMIRA [Suspect]
     Active Substance: ADALIMUMAB
     Indication: Rheumatoid arthritis

REACTIONS (6)
  - Off label use [Unknown]
  - Fatigue [Unknown]
  - Ankle fracture [Unknown]
  - Pain in extremity [Unknown]
  - Peripheral swelling [Unknown]
  - Pain [Unknown]

NARRATIVE: CASE EVENT DATE: 20210101
